FAERS Safety Report 5441729-6 (Version None)
Quarter: 2007Q3

REPORT INFORMATION
  Report Type: 
  Country: None (occurrence: None)
  Receive Date: 20070829
  Receipt Date: 20070814
  Transmission Date: 20080115
  Serious: Yes (Hospitalization)
  Sender: FDA-Public Use
  Company Number: 100#08#2007-03048

PATIENT
  Age: 55 Year
  Sex: Male

DRUGS (12)
  1. AMIODARONE HCL [Suspect]
     Indication: ATRIAL FIBRILLATION
     Dosage: 1200 MG (400 MG, 3 IN 1 D) ORAL
     Route: 048
  2. RAMIPRIL [Suspect]
     Indication: DRUG USE FOR UNKNOWN INDICATION
     Dosage: TITRATED TO 10MG
  3. ACETYLSALICYLIC ACID (ACETYLSALICYLIC ACID) (ACETYLSALICYLIC ACID) [Concomitant]
  4. METOPROLOL SUCCINATE [Concomitant]
  5. ATORVASTATIN (ATORVASTATIN) (ATORVASTATIN) [Concomitant]
  6. OMEPRAZOLE [Concomitant]
  7. PARACETAMOL (PARACETAMOL) (PARACETAMOL) [Concomitant]
  8. TRAMADOL HCL [Concomitant]
  9. HEPARIN [Concomitant]
  10. CLOPIDOGREL (CLOPIDOGREL) (CLOPIDOGREL) [Concomitant]
  11. NICORANDIL (NICORANDIL) (NICORANDIL) [Concomitant]
  12. OMNIPAQUE 350 (IOHEXOL) (IOHEXOL) [Concomitant]

REACTIONS (3)
  - ANGIOEDEMA [None]
  - ATRIAL FIBRILLATION [None]
  - HYPERSENSITIVITY [None]
